FAERS Safety Report 19642343 (Version 3)
Quarter: 2021Q4

REPORT INFORMATION
  Report Type: Spontaneous
  Country: US (occurrence: US)
  Receive Date: 20210731
  Receipt Date: 20211109
  Transmission Date: 20220303
  Serious: Yes (Other)
  Sender: FDA-Public Use
  Company Number: US-CELGENE-USA-20210705801

PATIENT
  Sex: Male
  Weight: 81.266 kg

DRUGS (2)
  1. REVLIMID [Suspect]
     Active Substance: LENALIDOMIDE
     Indication: Plasma cell myeloma
     Dosage: 10 MILLIGRAM
     Route: 048
     Dates: start: 202008
  2. REVLIMID [Suspect]
     Active Substance: LENALIDOMIDE
     Dosage: 5 MILLIGRAM
     Route: 048
     Dates: start: 202012

REACTIONS (3)
  - Jaw disorder [Recovered/Resolved with Sequelae]
  - Toothache [Unknown]
  - Tooth infection [Recovered/Resolved with Sequelae]

NARRATIVE: CASE EVENT DATE: 20210101
